FAERS Safety Report 4989156-X (Version None)
Quarter: 2006Q2

REPORT INFORMATION
  Report Type: 
  Country: None (occurrence: None)
  Receive Date: 20060425
  Receipt Date: 20060414
  Transmission Date: 20061013
  Serious: Yes (Hospitalization)
  Sender: FDA-Public Use
  Company Number: 2006051458

PATIENT
  Age: 16 Year
  Sex: Male
  Weight: 68.0396 kg

DRUGS (2)
  1. DRAMAMINE [Suspect]
     Dosage: APPROXIMATELY 30 TABLETS ONCE, ORAL
     Route: 048
     Dates: start: 20060414, end: 20060414
  2. SERTRALINE HCL [Concomitant]

REACTIONS (4)
  - HEART RATE INCREASED [None]
  - INCOHERENT [None]
  - OVERDOSE [None]
  - TREMOR [None]
